FAERS Safety Report 8550170-9 (Version None)
Quarter: 2012Q3

REPORT INFORMATION
  Report Type: 
  Country: None (occurrence: None)
  Receive Date: 20120730
  Receipt Date: 20120719
  Transmission Date: 20120928
  Serious: Yes (Hospitalization)
  Sender: FDA-Public Use
  Company Number: US-ACTELION-A-NJ2012-69240

PATIENT
  Age: 57 Year
  Sex: Female

DRUGS (3)
  1. TYVASO [Concomitant]
  2. TRACLEER [Suspect]
     Indication: PULMONARY ARTERIAL HYPERTENSION
     Dosage: UNK
     Route: 048
  3. COUMADIN [Concomitant]

REACTIONS (5)
  - TRANSFUSION [None]
  - PNEUMONIA [None]
  - DYSPNOEA [None]
  - ATRIAL FIBRILLATION [None]
  - HAEMORRHAGE [None]
